FAERS Safety Report 5163859-9 (Version None)
Quarter: 2006Q4

REPORT INFORMATION
  Report Type: 
  Country: None (occurrence: None)
  Receive Date: 20061124
  Receipt Date: 20061114
  Transmission Date: 20070319
  Serious: Yes (Other)
  Sender: FDA-Public Use
  Company Number: 2006110175

PATIENT
  Age: 66 Year
  Sex: Female
  Weight: 62.1428 kg

DRUGS (8)
  1. DETROL LA [Suspect]
     Indication: INCONTINENCE
     Dosage: 4 MG (4 MG 1 IN 1 D)
     Dates: start: 20060101
  2. LIPITOR [Suspect]
  3. NEXIUM [Concomitant]
  4. ATENOLOL [Concomitant]
  5. MULTI-VITAMINS [Concomitant]
  6. ANTIFUNGALS (ANTIFUNGALS) [Concomitant]
  7. MACROBID [Concomitant]
  8. MILK OF MAGNESIA TAB [Concomitant]

REACTIONS (9)
  - ABDOMINAL PAIN UPPER [None]
  - BACK PAIN [None]
  - CYSTITIS [None]
  - DRY EYE [None]
  - DRY MOUTH [None]
  - MUSCULOSKELETAL CHEST PAIN [None]
  - NEPHROLITHIASIS [None]
  - PAIN [None]
  - UTEROVAGINAL PROLAPSE [None]
